FAERS Safety Report 8738148 (Version 4)
Quarter: 2014Q3

REPORT INFORMATION
  Report Type: Spontaneous
  Country: US (occurrence: US)
  Receive Date: 20120823
  Receipt Date: 20140724
  Transmission Date: 20150326
  Serious: Yes (Hospitalization, Other)
  Sender: FDA-Public Use
  Company Number: US-009507513-2011SP030599

PATIENT
  Sex: Female
  Weight: 69.71 kg

DRUGS (3)
  1. NUVARING [Suspect]
     Active Substance: ETHINYL ESTRADIOL\ETONOGESTREL
     Dosage: UNK
     Route: 067
     Dates: start: 20090506, end: 200907
  2. NUVARING [Suspect]
     Active Substance: ETHINYL ESTRADIOL\ETONOGESTREL
     Dosage: UNK
  3. NUVARING [Suspect]
     Active Substance: ETHINYL ESTRADIOL\ETONOGESTREL
     Indication: PRODUCT USED FOR UNKNOWN INDICATION
     Dosage: UNK
     Route: 067
     Dates: start: 200702, end: 200703

REACTIONS (12)
  - Pneumonia [Unknown]
  - Rectal haemorrhage [Unknown]
  - Pain [Recovered/Resolved]
  - Anaemia [Unknown]
  - Haemoptysis [Unknown]
  - Pulmonary infarction [Unknown]
  - Abscess [Unknown]
  - Pulmonary embolism [Unknown]
  - Skin lesion [Unknown]
  - Dermatitis allergic [Unknown]
  - Sinus disorder [Recovered/Resolved]
  - Back pain [Unknown]

NARRATIVE: CASE EVENT DATE: 200906
